FAERS Safety Report 7953179-9 (Version None)
Quarter: 2011Q4

REPORT INFORMATION
  Report Type: 
  Country: None (occurrence: None)
  Receive Date: 20111201
  Receipt Date: 20111123
  Transmission Date: 20120403
  Serious: Yes (Other)
  Sender: FDA-Public Use
  Company Number: FR-BAXTER-2011BH037394

PATIENT
  Age: 47 Year
  Sex: Male
  Weight: 62 kg

DRUGS (24)
  1. BACTRIM [Concomitant]
     Indication: PRODUCT USED FOR UNKNOWN INDICATION
     Route: 065
  2. MABTHERA [Suspect]
     Indication: B-CELL LYMPHOMA
     Route: 042
     Dates: start: 20110826
  3. VINCRISTINE SULFATE [Suspect]
     Indication: B-CELL LYMPHOMA
     Route: 042
     Dates: start: 20110826
  4. VOGALENE [Concomitant]
     Indication: PRODUCT USED FOR UNKNOWN INDICATION
     Route: 065
  5. PREZISTA [Concomitant]
     Indication: PRODUCT USED FOR UNKNOWN INDICATION
     Route: 065
  6. CYCLOPHOSPHAMIDE [Suspect]
     Indication: B-CELL LYMPHOMA
     Route: 042
     Dates: start: 20110826
  7. CYCLOPHOSPHAMIDE [Suspect]
     Route: 042
     Dates: start: 20111017
  8. PREDNISONE TAB [Suspect]
     Indication: B-CELL LYMPHOMA
     Route: 048
     Dates: start: 20110826
  9. PREDNISONE TAB [Suspect]
     Route: 048
     Dates: start: 20111017
  10. LEUCOVORIN CALCIUM [Concomitant]
     Indication: PRODUCT USED FOR UNKNOWN INDICATION
     Route: 065
  11. DOXORUBICIN HCL [Suspect]
     Route: 042
     Dates: start: 20111102
  12. VINCRISTINE SULFATE [Suspect]
     Route: 042
     Dates: start: 20111017
  13. VINCRISTINE SULFATE [Suspect]
     Route: 042
     Dates: start: 20111102
  14. METHOTREXATE [Concomitant]
     Indication: B-CELL LYMPHOMA
     Route: 037
     Dates: start: 20110801
  15. NORVIR [Concomitant]
     Indication: PRODUCT USED FOR UNKNOWN INDICATION
     Route: 065
  16. INTELENCE [Concomitant]
     Indication: PRODUCT USED FOR UNKNOWN INDICATION
     Route: 065
  17. ZELITREX                                /DEN/ [Concomitant]
     Indication: PRODUCT USED FOR UNKNOWN INDICATION
     Route: 065
  18. CYCLOPHOSPHAMIDE [Suspect]
     Route: 042
     Dates: start: 20111102
  19. MABTHERA [Suspect]
     Route: 042
     Dates: start: 20111017
  20. MABTHERA [Suspect]
     Route: 042
     Dates: start: 20111102
  21. DOXORUBICIN HCL [Suspect]
     Indication: B-CELL LYMPHOMA
     Route: 042
     Dates: start: 20110826
  22. DOXORUBICIN HCL [Suspect]
     Route: 042
     Dates: start: 20111017
  23. PREDNISONE TAB [Suspect]
     Route: 048
     Dates: start: 20111102
  24. LENOGRASTIM [Concomitant]
     Indication: PRODUCT USED FOR UNKNOWN INDICATION
     Route: 065

REACTIONS (1)
  - HEPATITIS B [None]
